FAERS Safety Report 6981556-1 (Version None)
Quarter: 2010Q3

REPORT INFORMATION
  Report Type: 
  Country: None (occurrence: None)
  Receive Date: 20100914
  Receipt Date: 20100908
  Transmission Date: 20110219
  Serious: No
  Sender: FDA-Public Use
  Company Number: US-B.I. PHARMACEUTICALS,INC./RIDGEFIELD-2010-BP-10177BP

PATIENT
  Age: 4 Year

DRUGS (1)
  1. ZANTAC 75 [Suspect]
     Route: 048

REACTIONS (1)
  - NO ADVERSE EVENT [None]
